FAERS Safety Report 12825995 (Version 3)
Quarter: 2016Q4

REPORT INFORMATION
  Report Type: Spontaneous
  Country: GR (occurrence: GR)
  Receive Date: 20161007
  Receipt Date: 20161028
  Transmission Date: 20170207
  Serious: Yes (Other)
  Sender: FDA-Public Use
  Company Number: GR-GILEAD-2016-0234770

PATIENT
  Age: 39 Year
  Sex: Male
  Weight: 86 kg

DRUGS (3)
  1. XANAX [Concomitant]
     Active Substance: ALPRAZOLAM
     Indication: ANXIETY DISORDER
     Dosage: 0.5 MG, A HALF DOSAGE FORM, ONCE DAILY
     Route: 048
     Dates: start: 20160701
  2. SOVALDI [Suspect]
     Active Substance: SOFOSBUVIR
     Indication: CHRONIC HEPATITIS C
     Dosage: 400 MG, UNK
     Route: 048
     Dates: start: 20160725, end: 2016
  3. RIBATREL [Concomitant]
     Indication: CHRONIC HEPATITIS C
     Dosage: 3 DOSES OF 200 MG TWICE DAILY
     Route: 048
     Dates: start: 20160725

REACTIONS (3)
  - Vision blurred [Not Recovered/Not Resolved]
  - Xerophthalmia [Recovering/Resolving]
  - Ocular vascular disorder [Not Recovered/Not Resolved]

NARRATIVE: CASE EVENT DATE: 20160915
